FAERS Safety Report 4629895-3 (Version None)
Quarter: 2005Q2

REPORT INFORMATION
  Report Type: 
  Country: None (occurrence: None)
  Receive Date: 20050406
  Receipt Date: 20050318
  Transmission Date: 20051028
  Serious: Yes (Hospitalization)
  Sender: FDA-Public Use
  Company Number: GBT050302022

PATIENT
  Age: 51 Year
  Sex: Male
  Weight: 60 kg

DRUGS (7)
  1. ALIMTA [Suspect]
     Indication: NON-SMALL CELL LUNG CANCER
     Dosage: 1500 MG/1 OTHER
     Dates: start: 20050310
  2. VITAMIN B-12 [Concomitant]
  3. FOLIC ACID [Concomitant]
  4. DEXAMETHASONE [Concomitant]
  5. TRANEXAMIC ACID [Concomitant]
  6. MEGACE [Concomitant]
  7. PARACETAMOL [Concomitant]

REACTIONS (4)
  - DYSPNOEA [None]
  - LABORATORY TEST ABNORMAL [None]
  - NEUROPATHIC PAIN [None]
  - RED BLOOD CELL SEDIMENTATION RATE INCREASED [None]
